FAERS Safety Report 25989513 (Version 1)
Quarter: 2025Q4

REPORT INFORMATION
  Report Type: Spontaneous
  Country: PR (occurrence: None)
  Receive Date: 20251031
  Receipt Date: 20251031
  Transmission Date: 20260118
  Serious: Yes (Other)
  Sender: FDA-CTU
  Company Number: None

PATIENT
  Age: 51 Year
  Sex: Female
  Weight: 67.05 kg

DRUGS (5)
  1. MAVENCLAD [Suspect]
     Active Substance: CLADRIBINE
     Dosage: FREQUENCY : DAILY;?
     Route: 048
     Dates: start: 20251016
  2. diphenhydrAMINE HCl Oral [Concomitant]
  3. Multivitamin Women Oral [Concomitant]
  4. Vitamin D3 Oral [Concomitant]
  5. TYLENOL 8 HR ARTHRITIS PAIN [Concomitant]
     Active Substance: ACETAMINOPHEN

REACTIONS (8)
  - Urticaria [None]
  - Eye swelling [None]
  - Lacrimation increased [None]
  - Lip swelling [None]
  - Throat irritation [None]
  - Vulvovaginal pruritus [None]
  - Back pain [None]
  - Fatigue [None]

NARRATIVE: CASE EVENT DATE: 20251031
